FAERS Safety Report 12470310 (Version 1)
Quarter: 2016Q2

REPORT INFORMATION
  Report Type: Report from Study
  Country: US (occurrence: US)
  Receive Date: 20160616
  Receipt Date: 20160616
  Transmission Date: 20160815
  Serious: Yes (Hospitalization)
  Sender: FDA-Public Use
  Company Number: US-ROCHE-1774131

PATIENT
  Age: 66 Year
  Sex: Female
  Weight: 56.75 kg

DRUGS (7)
  1. TAXOTERE [Concomitant]
     Active Substance: DOCETAXEL
     Indication: BREAST CANCER STAGE III
     Route: 042
     Dates: start: 201510, end: 201510
  2. SYNTHROID [Concomitant]
     Active Substance: LEVOTHYROXINE SODIUM
     Dosage: YES
     Route: 065
     Dates: start: 1986
  3. HERCEPTIN [Suspect]
     Active Substance: TRASTUZUMAB
     Indication: BREAST CANCER STAGE III
     Route: 042
     Dates: start: 201512
  4. HERCEPTIN [Suspect]
     Active Substance: TRASTUZUMAB
     Route: 042
     Dates: start: 201510, end: 201510
  5. PERJETA [Suspect]
     Active Substance: PERTUZUMAB
     Indication: BREAST CANCER STAGE III
     Route: 042
     Dates: start: 201510, end: 201510
  6. CARBOPLATIN. [Concomitant]
     Active Substance: CARBOPLATIN
     Indication: BREAST CANCER STAGE III
     Route: 042
     Dates: start: 201510, end: 201510
  7. ANASTROZOLE. [Concomitant]
     Active Substance: ANASTROZOLE
     Dosage: YES
     Route: 048
     Dates: start: 201603

REACTIONS (8)
  - Drug hypersensitivity [Unknown]
  - Nausea [Recovered/Resolved with Sequelae]
  - Onychomadesis [Not Recovered/Not Resolved]
  - Diarrhoea [Recovered/Resolved]
  - Fatigue [Recovered/Resolved with Sequelae]
  - Immunodeficiency [Recovered/Resolved]
  - Disturbance in attention [Not Recovered/Not Resolved]
  - Onychoclasis [Not Recovered/Not Resolved]

NARRATIVE: CASE EVENT DATE: 201510
